FAERS Safety Report 4496864-6 (Version None)
Quarter: 2004Q4

REPORT INFORMATION
  Report Type: 
  Country: None (occurrence: None)
  Receive Date: 20041109
  Receipt Date: 20041102
  Transmission Date: 20050328
  Serious: Yes (Life-Threatening, Other)
  Sender: FDA-Public Use
  Company Number: TR-GLAXOSMITHKLINE-B0350925A

PATIENT
  Age: 62 Year
  Sex: Female
  Weight: 78 kg

DRUGS (4)
  1. CEFUROXIME AXETIL [Suspect]
     Indication: DRUG USE FOR UNKNOWN INDICATION
     Dosage: 250MG TWICE PER DAY
     Dates: start: 20041018, end: 20041018
  2. BRONCHODILATORS [Concomitant]
  3. CORTICOSTEROIDS [Concomitant]
     Route: 055
  4. ANTI-ALLERGIC DRUG [Concomitant]
     Indication: ILL-DEFINED DISORDER

REACTIONS (6)
  - BRONCHOSPASM [None]
  - COUGH [None]
  - DYSPHAGIA [None]
  - ERYTHEMA [None]
  - HYPOAESTHESIA [None]
  - URTICARIA [None]
